FAERS Safety Report 11371851 (Version 1)
Quarter: 2015Q3

REPORT INFORMATION
  Report Type: Spontaneous
  Country: QA (occurrence: QA)
  Receive Date: 20150812
  Receipt Date: 20150812
  Transmission Date: 20151125
  Serious: Yes (Life-Threatening, Other)
  Sender: FDA-Public Use
  Company Number: PHHY2015QA093670

PATIENT
  Age: 23 Year
  Sex: Female

DRUGS (6)
  1. LABETALOL [Suspect]
     Active Substance: LABETALOL\LABETALOL HYDROCHLORIDE
     Indication: PRE-ECLAMPSIA
     Dosage: 20 MG/H, UNK
     Route: 042
  2. LABETALOL [Suspect]
     Active Substance: LABETALOL\LABETALOL HYDROCHLORIDE
     Dosage: 40 MG/H, UNK (AFTER 30 MIN)
     Route: 042
  3. LABETALOL [Suspect]
     Active Substance: LABETALOL\LABETALOL HYDROCHLORIDE
     Dosage: 200 MG, BID
     Route: 048
  4. BETAMETHASONE. [Suspect]
     Active Substance: BETAMETHASONE
     Indication: FOETAL GROWTH RESTRICTION
     Dosage: 12 MG, BID (FOR 48 HRS)
     Route: 042
  5. LABETALOL [Suspect]
     Active Substance: LABETALOL\LABETALOL HYDROCHLORIDE
     Dosage: 160 MG/H, UNK (MAXIMUM)
     Route: 042
  6. MAGNESIUM [Suspect]
     Active Substance: MAGNESIUM
     Indication: PRE-ECLAMPSIA
     Dosage: 1 G/H (FOR THE NEXT 24 H)
     Route: 065

REACTIONS (3)
  - Blood glucose increased [Recovered/Resolved]
  - Hyperkalaemia [Recovered/Resolved]
  - Maternal exposure during pregnancy [Recovered/Resolved]
